FAERS Safety Report 5720162-3 (Version None)
Quarter: 2008Q2

REPORT INFORMATION
  Report Type: 
  Country: None (occurrence: None)
  Receive Date: 20080428
  Receipt Date: 20070910
  Transmission Date: 20081010
  Serious: No
  Sender: FDA-Public Use
  Company Number: US-AMGEN-US242687

PATIENT
  Sex: Male
  Weight: 81 kg

DRUGS (13)
  1. SENSIPAR [Suspect]
     Indication: HYPERPARATHYROIDISM SECONDARY
     Route: 048
     Dates: start: 20060101
  2. AMBIEN [Concomitant]
     Route: 065
     Dates: start: 20061226
  3. ASPIRIN [Concomitant]
     Route: 065
     Dates: start: 20060713
  4. DIATX [Concomitant]
     Route: 065
     Dates: start: 20060713
  5. FOSRENOL [Concomitant]
     Route: 065
     Dates: start: 20060904
  6. HUMULIN R [Concomitant]
     Route: 065
     Dates: start: 20060713
  7. NORVASC [Concomitant]
     Route: 065
     Dates: start: 20060713
  8. PAXIL [Concomitant]
     Route: 065
     Dates: start: 20060713
  9. PLAVIX [Concomitant]
     Route: 065
     Dates: start: 20060713
  10. TOPROL-XL [Concomitant]
     Route: 065
     Dates: start: 20060713
  11. TRICOR [Concomitant]
     Route: 065
     Dates: start: 20060713
  12. VENOFER [Concomitant]
     Route: 042
     Dates: start: 20071010
  13. ZEMPLAR [Concomitant]
     Route: 042
     Dates: start: 20060710

REACTIONS (1)
  - COUGH [None]
